FAERS Safety Report 10089894 (Version 1)
Quarter: 2014Q2

REPORT INFORMATION
  Report Type: Spontaneous
  Country: US (occurrence: US)
  Receive Date: 20140421
  Receipt Date: 20140421
  Transmission Date: 20141212
  Serious: No
  Sender: FDA-Public Use
  Company Number: US-ABBVIE-13P-163-1153650-00

PATIENT
  Age: 10 Year
  Sex: Male
  Weight: 41.77 kg

DRUGS (1)
  1. LUPRON DEPOT-PED [Suspect]
     Indication: PRECOCIOUS PUBERTY
     Dosage: TEN INJECTIONS
     Route: 030
     Dates: start: 20130109

REACTIONS (1)
  - Hallucination [Not Recovered/Not Resolved]
